FAERS Safety Report 20064523 (Version 5)
Quarter: 2022Q2

REPORT INFORMATION
  Report Type: Report from Study
  Country: US (occurrence: US)
  Receive Date: 20211112
  Receipt Date: 20220624
  Transmission Date: 20220720
  Serious: Yes (Hospitalization, Other)
  Sender: FDA-Public Use
  Company Number: US-ABBVIE-21P-163-4150375-00

PATIENT
  Age: 56 Year
  Sex: Female
  Weight: 103.1 kg

DRUGS (7)
  1. VENETOCLAX [Suspect]
     Active Substance: VENETOCLAX
     Indication: Diffuse large B-cell lymphoma
     Dosage: DAYS 4-8(CYCLE 1) DAYS 1-5 (CYCLE 2-6) OF 21 DAY CYCLE.
     Route: 048
     Dates: start: 20200630
  2. PREDNISOLONE [Concomitant]
     Active Substance: PREDNISOLONE
     Indication: Diffuse large B-cell lymphoma
     Dosage: DAYS 1-5 OF 21 DAY CYCLE
     Route: 048
     Dates: start: 20200630
  3. CYCLOPHOSPHAMIDE [Concomitant]
     Active Substance: CYCLOPHOSPHAMIDE
     Indication: Diffuse large B-cell lymphoma
     Dosage: ON DAY 5 OF 21 DAY CYCLE
     Route: 042
     Dates: start: 20200704
  4. DOXORUBICIN HYDROCHLORIDE [Concomitant]
     Active Substance: DOXORUBICIN HYDROCHLORIDE
     Indication: Diffuse large B-cell lymphoma
     Dosage: DAYS 1-4 OF 21 DAY CYCLE
     Dates: start: 20200630
  5. ETOPOSIDE [Concomitant]
     Active Substance: ETOPOSIDE
     Indication: Diffuse large B-cell lymphoma
     Dosage: ON DAYS 1-4 OF 21 DAY CYCLE
     Dates: start: 20200630
  6. RITUXIMAB [Concomitant]
     Active Substance: RITUXIMAB
     Indication: Diffuse large B-cell lymphoma
     Dosage: ON DAY 1 OF 21 DAY CYCLE
     Route: 042
     Dates: start: 20200630
  7. VINCRISTINE SULFATE [Concomitant]
     Active Substance: VINCRISTINE SULFATE
     Indication: Diffuse large B-cell lymphoma
     Dosage: ON DAY 5 OF 21 DAY CYCLE
     Route: 042
     Dates: start: 20200630

REACTIONS (7)
  - Device related infection [Recovered/Resolved]
  - Enterocolitis infectious [Recovered/Resolved]
  - Diarrhoea [Recovered/Resolved]
  - Pyrexia [Recovered/Resolved]
  - Lymphocyte count decreased [Recovered/Resolved]
  - Platelet count decreased [Recovered/Resolved]
  - White blood cell count decreased [Recovered/Resolved]

NARRATIVE: CASE EVENT DATE: 20200812
